FAERS Safety Report 5994155-5 (Version None)
Quarter: 2008Q4

REPORT INFORMATION
  Report Type: 
  Country: None (occurrence: None)
  Receive Date: 20081212
  Receipt Date: 20080902
  Transmission Date: 20090506
  Serious: No
  Sender: FDA-Public Use
  Company Number: US-ABBOTT-08P-163-0473731-00

PATIENT
  Sex: Male
  Weight: 78.542 kg

DRUGS (4)
  1. HUMIRA [Suspect]
     Indication: RHEUMATOID ARTHRITIS
     Route: 058
     Dates: start: 20080301, end: 20080301
  2. PREDNISONE TAB [Concomitant]
     Indication: RHEUMATOID ARTHRITIS
     Dosage: 1 1/2 TABLET, 1 IN 1 D
     Route: 048
  3. CELECOXIB [Concomitant]
     Indication: ANTIINFLAMMATORY THERAPY
     Route: 048
  4. HYDROCODONE BITARTRATE [Concomitant]
     Indication: PAIN
     Dosage: 5/325 MG, 2 IN 1 D
     Route: 048

REACTIONS (2)
  - PRURITUS [None]
  - RASH GENERALISED [None]
